FAERS Safety Report 7792089-7 (Version None)
Quarter: 2011Q4

REPORT INFORMATION
  Report Type: 
  Country: None (occurrence: None)
  Receive Date: 20111003
  Receipt Date: 20110927
  Transmission Date: 20120403
  Serious: Yes (Hospitalization, Other)
  Sender: FDA-Public Use
  Company Number: US-AMGEN-USASP2011049941

PATIENT
  Sex: Male

DRUGS (1)
  1. ENBREL [Suspect]
     Indication: RHEUMATOID ARTHRITIS
     Dosage: 25 MG, 2 TIMES/WK
     Dates: start: 19990601

REACTIONS (8)
  - CORONARY ARTERY BYPASS [None]
  - FOOT DEFORMITY [None]
  - LACERATION [None]
  - TOE AMPUTATION [None]
  - KNEE ARTHROPLASTY [None]
  - NASOPHARYNGITIS [None]
  - PROSTATE CANCER [None]
  - WOUND INFECTION [None]
